FAERS Safety Report 8303146-0 (Version None)
Quarter: 2012Q2

REPORT INFORMATION
  Report Type: 
  Country: None (occurrence: None)
  Receive Date: 20120423
  Receipt Date: 20120413
  Transmission Date: 20120825
  Serious: Yes (Other)
  Sender: FDA-Public Use
  Company Number: US-BIOGENIDEC-2010BI022211

PATIENT
  Sex: Female

DRUGS (3)
  1. AVONEX [Suspect]
     Indication: MULTIPLE SCLEROSIS
     Route: 030
     Dates: start: 19971122, end: 20010101
  2. AVONEX [Suspect]
     Route: 030
     Dates: start: 20060418, end: 20091228
  3. AVONEX [Suspect]
     Route: 030
     Dates: start: 20110423

REACTIONS (3)
  - MYCOSIS FUNGOIDES [None]
  - T-CELL LYMPHOMA [None]
  - CONSTIPATION [None]
